FAERS Safety Report 7415239-0 (Version None)
Quarter: 2011Q2

REPORT INFORMATION
  Report Type: 
  Country: None (occurrence: None)
  Receive Date: 20110414
  Receipt Date: 20110411
  Transmission Date: 20111010
  Serious: Yes (Life-Threatening, Hospitalization, Other)
  Sender: FDA-Public Use
  Company Number: PHFR2011IE01772

PATIENT
  Sex: Male
  Weight: 75 kg

DRUGS (8)
  1. ATECOR [Concomitant]
     Indication: HYPERTENSION
     Dosage: 12.5 MG, UNK
     Route: 048
     Dates: start: 20080101
  2. ACETYLSALICYLIC ACID SRT [Concomitant]
     Indication: ISCHAEMIC HEART DISEASE PROPHYLAXIS
     Dosage: 75 MG, UNK
     Route: 048
     Dates: start: 20080101
  3. CLOZARIL [Suspect]
     Dosage: 450 MG
     Route: 048
     Dates: start: 20070101
  4. EPILIM CHRONO [Concomitant]
     Indication: AFFECTIVE DISORDER
     Dosage: 500 MG, UNK
     Route: 048
     Dates: start: 20050101
  5. ZOTON [Concomitant]
     Indication: GASTRITIS
     Dosage: 30 MG, UNK
     Route: 048
     Dates: start: 20080101
  6. LITHIUM [Concomitant]
     Indication: AFFECTIVE DISORDER
     Dosage: 800 MG, UNK
     Route: 048
     Dates: start: 20040101
  7. CLOZARIL [Suspect]
     Indication: SCHIZOPHRENIA
     Dosage: UNK MG, UNK
     Route: 048
     Dates: start: 20070303
  8. PRAVASTATIN [Concomitant]
     Indication: HYPERCHOLESTEROLAEMIA
     Dosage: 20 MG, UNK
     Route: 048
     Dates: start: 20090101

REACTIONS (6)
  - GASTRITIS [None]
  - SEDATION [None]
  - FALL [None]
  - HYPERCHOLESTEROLAEMIA [None]
  - SCAPULA FRACTURE [None]
  - HYPERTENSION [None]
